FAERS Safety Report 11242593 (Version 1)
Quarter: 2015Q3

REPORT INFORMATION
  Report Type: Spontaneous
  Country: GB (occurrence: GB)
  Receive Date: 20150707
  Receipt Date: 20150707
  Transmission Date: 20151125
  Serious: Yes (Hospitalization)
  Sender: FDA-Public Use
  Company Number: GB-ACCORD-031820

PATIENT
  Age: 77 Year
  Sex: Male
  Weight: 72 kg

DRUGS (12)
  1. SALBUTAMOL [Concomitant]
     Active Substance: ALBUTEROL
  2. CARBOCISTEINE [Concomitant]
     Active Substance: CARBOCYSTEINE
  3. GLYCERYL TRINITRATE [Concomitant]
     Active Substance: NITROGLYCERIN
  4. THIAMINE. [Concomitant]
     Active Substance: THIAMINE
  5. ENALAPRIL [Concomitant]
     Active Substance: ENALAPRIL
  6. ATORVASTATIN [Concomitant]
     Active Substance: ATORVASTATIN
  7. LEVOTHYROXINE. [Concomitant]
     Active Substance: LEVOTHYROXINE
  8. SERETIDE [Concomitant]
     Active Substance: FLUTICASONE FUROATE\SALMETEROL XINAFOATE
  9. TIOTROPIUM [Concomitant]
     Active Substance: TIOTROPIUM
  10. BISOPROLOL [Concomitant]
     Active Substance: BISOPROLOL
  11. CLOPIDOGREL [Suspect]
     Active Substance: CLOPIDOGREL BISULFATE
     Indication: ACUTE MYOCARDIAL INFARCTION
     Route: 048
     Dates: start: 20150524
  12. ACETYLSALICYLIC ACID [Suspect]
     Active Substance: ASPIRIN
     Indication: ACUTE MYOCARDIAL INFARCTION
     Route: 048
     Dates: start: 1995

REACTIONS (3)
  - Gastric mucosal lesion [Recovering/Resolving]
  - Upper gastrointestinal haemorrhage [Recovering/Resolving]
  - Hiatus hernia [Recovering/Resolving]

NARRATIVE: CASE EVENT DATE: 20150614
